FAERS Safety Report 10468872 (Version 2)
Quarter: 2014Q3

REPORT INFORMATION
  Report Type: Report from Study
  Country: BR (occurrence: BR)
  Receive Date: 20140923
  Receipt Date: 20140923
  Transmission Date: 20150326
  Serious: Yes (Hospitalization)
  Sender: FDA-Public Use
  Company Number: BR-ROCHE-1135168

PATIENT
  Sex: Female
  Weight: 57 kg

DRUGS (6)
  1. METHOTREXATE [Concomitant]
     Active Substance: METHOTREXATE
     Route: 065
  2. DEFLAZACORT [Concomitant]
     Active Substance: DEFLAZACORT
     Route: 065
  3. ARAVA [Concomitant]
     Active Substance: LEFLUNOMIDE
     Route: 065
  4. FOLIC ACID. [Concomitant]
     Active Substance: FOLIC ACID
     Route: 065
  5. MABTHERA [Suspect]
     Active Substance: RITUXIMAB
     Indication: RHEUMATOID ARTHRITIS
     Route: 065
     Dates: start: 20120828
  6. FAMOTIDINE. [Concomitant]
     Active Substance: FAMOTIDINE
     Route: 065

REACTIONS (2)
  - Oral candidiasis [Recovered/Resolved]
  - Foot deformity [Not Recovered/Not Resolved]
